FAERS Safety Report 15745556 (Version 1)
Quarter: 2018Q4

REPORT INFORMATION
  Report Type: Spontaneous
  Country: IT (occurrence: IT)
  Receive Date: 20181220
  Receipt Date: 20181220
  Transmission Date: 20190205
  Serious: Yes (Hospitalization, Other)
  Sender: FDA-Public Use
  Company Number: IT-B.I. PHARMACEUTICALS,INC./RIDGEFIELD-2018-BI-061013

PATIENT
  Age: 58 Year
  Sex: Female

DRUGS (1)
  1. PRADAXA [Suspect]
     Active Substance: DABIGATRAN ETEXILATE MESYLATE
     Indication: ATRIAL FIBRILLATION
     Route: 065

REACTIONS (8)
  - Dysarthria [Recovering/Resolving]
  - Cerebrovascular accident [Unknown]
  - Asthenia [Unknown]
  - Apraxia [Recovering/Resolving]
  - Facial paralysis [Recovering/Resolving]
  - Dysphonia [Unknown]
  - Hypoaesthesia [Recovering/Resolving]
  - Motor dysfunction [Recovering/Resolving]
